FAERS Safety Report 19231244 (Version 1)
Quarter: 2021Q2

REPORT INFORMATION
  Report Type: Spontaneous
  Country: IT (occurrence: IT)
  Receive Date: 20210507
  Receipt Date: 20210507
  Transmission Date: 20210717
  Serious: Yes (Other)
  Sender: FDA-Public Use
  Company Number: IT-TEVA-2021-IT-1907737

PATIENT
  Age: 45 Year
  Sex: Male

DRUGS (3)
  1. BIPERIDEN HYDROCHLORIDE [Concomitant]
     Active Substance: BIPERIDEN HYDROCHLORIDE
     Indication: PSYCHOTIC DISORDER
     Dosage: 4 MG
     Route: 048
  2. CLOZAPINE. [Suspect]
     Active Substance: CLOZAPINE
     Indication: PSYCHOTIC DISORDER
     Dosage: 100 MG
     Route: 048
     Dates: start: 20210323, end: 20210412
  3. PROMAZINE [Concomitant]
     Active Substance: PROMAZINE
     Indication: PSYCHOTIC DISORDER
     Dosage: 20 MG
     Route: 048

REACTIONS (1)
  - Cardiotoxicity [Recovered/Resolved]

NARRATIVE: CASE EVENT DATE: 20210408
